FAERS Safety Report 5336837-4 (Version None)
Quarter: 2007Q2

REPORT INFORMATION
  Report Type: 
  Country: None (occurrence: None)
  Receive Date: 20070529
  Receipt Date: 20070521
  Transmission Date: 20071010
  Serious: Yes (Death)
  Sender: FDA-Public Use
  Company Number: US-BAYER-200711408BWH

PATIENT
  Age: 57 Year
  Sex: Female

DRUGS (1)
  1. NEXAVAR [Suspect]
     Indication: LUNG NEOPLASM MALIGNANT
     Dosage: TOTAL DAILY DOSE: 800 MG  UNIT DOSE: 200 MG
     Route: 048

REACTIONS (5)
  - DIABETES MELLITUS INADEQUATE CONTROL [None]
  - DISEASE PROGRESSION [None]
  - HYPERGLYCAEMIA [None]
  - HYPOGLYCAEMIA [None]
  - LUNG NEOPLASM MALIGNANT [None]
